FAERS Safety Report 6557369-1 (Version None)
Quarter: 2010Q1

REPORT INFORMATION
  Report Type: 
  Country: None (occurrence: None)
  Receive Date: 20100129
  Receipt Date: 20100115
  Transmission Date: 20100710
  Serious: Yes (Disabling, Other)
  Sender: FDA-Public Use
  Company Number: PHHY2009JP50676

PATIENT
  Sex: Female
  Weight: 41 kg

DRUGS (4)
  1. ZOMETA [Suspect]
     Indication: METASTASES TO BONE
     Dosage: 4MG (PER ADMINISTRATION)
     Dates: start: 20060926, end: 20091027
  2. GEMZAR [Concomitant]
     Indication: PANCREATIC CARCINOMA
     Dosage: 1400 MG, UNK
     Route: 042
     Dates: start: 20060718, end: 20091104
  3. GEMZAR [Concomitant]
     Dosage: 1000 MG, UNK
  4. GEMZAR [Concomitant]
     Dosage: 800 MG, UNK
     Route: 042

REACTIONS (11)
  - BASOPHIL PERCENTAGE DECREASED [None]
  - DIABETES MELLITUS [None]
  - EOSINOPHIL PERCENTAGE INCREASED [None]
  - HAEMOGLOBIN DECREASED [None]
  - JAW FRACTURE [None]
  - LYMPHOCYTE PERCENTAGE INCREASED [None]
  - MONOCYTE PERCENTAGE INCREASED [None]
  - NEUTROPHIL PERCENTAGE DECREASED [None]
  - PAIN IN JAW [None]
  - RED BLOOD CELL COUNT DECREASED [None]
  - TOOTHACHE [None]
